FAERS Safety Report 8937549 (Version 2)
Quarter: 2013Q1

REPORT INFORMATION
  Report Type: Spontaneous
  Country: FR (occurrence: None)
  Receive Date: 20121121
  Receipt Date: 20130329
  Transmission Date: 20140127
  Serious: Yes (Hospitalization)
  Sender: FDA-Public Use
  Company Number: ABR_00697_2012

PATIENT
  Age: 69 Year
  Sex: Female

DRUGS (6)
  1. ERYTHROMYCIN [Suspect]
     Indication: PRODUCT USED FOR UNKNOWN INDICATION
     Route: 048
     Dates: start: 20120920, end: 20120920
  2. ROCEPHINE [Suspect]
     Indication: PYREXIA
     Route: 048
     Dates: start: 20120918, end: 20120920
  3. OFLOXACINE [Suspect]
     Indication: PRODUCT USED FOR UNKNOWN INDICATION
     Dates: start: 20120918, end: 20120921
  4. GLUCOPHAGE [Concomitant]
  5. DAONIL [Concomitant]
  6. FRACTAL [Concomitant]

REACTIONS (2)
  - Neutropenia [None]
  - Lymphopenia [None]
